FAERS Safety Report 4941572-8 (Version None)
Quarter: 2006Q1

REPORT INFORMATION
  Report Type: 
  Country: None (occurrence: None)
  Receive Date: 20060308
  Receipt Date: 20060224
  Transmission Date: 20060701
  Serious: Yes (Death)
  Sender: FDA-Public Use
  Company Number: 2005JP002320

PATIENT
  Age: 45 Year
  Sex: Male
  Weight: 61 kg

DRUGS (8)
  1. PROGRAF [Suspect]
     Indication: RENAL TRANSPLANT
     Dosage: 1 MG, BID, ORAL
     Route: 048
     Dates: start: 19970131
  2. PREDNISOLONE [Suspect]
     Indication: RENAL TRANSPLANT
     Dosage: 7.5 MG, UID/QD, ORAL
     Route: 048
     Dates: start: 19910721
  3. ROCALTROL (CALCITRIOL) PER ORAL NOS [Concomitant]
  4. KALIMATE (CALCIUM POLYSTYRENE SULFONATE) PER ORAL NOS [Concomitant]
  5. CALTAN (PRECIPITATED CALCIUM CARBONATE) PER ORAL NOS [Concomitant]
  6. LASIX /SWE/ (FUROSEMIDE) PER ORAL NOS [Concomitant]
  7. ZANTAC (RANITIDINE HYDROCHLORIDE) PER ORAL NOS [Concomitant]
  8. MIZORIBINE (MIZORIBINE) [Concomitant]

REACTIONS (6)
  - CARDIAC FAILURE [None]
  - CARDIOTOXICITY [None]
  - DRUG TOXICITY [None]
  - HAEMODIALYSIS [None]
  - KIDNEY TRANSPLANT REJECTION [None]
  - RENAL IMPAIRMENT [None]
